FAERS Safety Report 14288190 (Version 2)
Quarter: 2017Q4

REPORT INFORMATION
  Report Type: Spontaneous
  Country: AT (occurrence: AT)
  Receive Date: 20171214
  Receipt Date: 20171220
  Transmission Date: 20180321
  Serious: Yes (Other)
  Sender: FDA-Public Use
  Company Number: AT-TEVA-2017-AT-831657

PATIENT
  Sex: Male

DRUGS (1)
  1. CINQAERO [Suspect]
     Active Substance: RESLIZUMAB
     Dates: end: 2017

REACTIONS (3)
  - Arthralgia [Unknown]
  - Myalgia [Unknown]
  - Polymyalgia rheumatica [Unknown]
